FAERS Safety Report 9339051 (Version 1)
Quarter: 2013Q2

REPORT INFORMATION
  Report Type: Spontaneous
  Country: US (occurrence: None)
  Receive Date: 20130606
  Receipt Date: 20130606
  Transmission Date: 20140414
  Serious: No
  Sender: FDA-Public Use
  Company Number: None

PATIENT
  Age: 77 Year
  Sex: Male
  Weight: 58.97 kg

DRUGS (1)
  1. ATORVASTATIN [Suspect]
     Indication: HYPERLIPIDAEMIA
     Dosage: ONE TAB; NIGHTLY
     Route: 048
     Dates: start: 20130402, end: 20130603

REACTIONS (3)
  - Product counterfeit [None]
  - Product quality issue [None]
  - Drug ineffective [None]
